FAERS Safety Report 5685048-1 (Version None)
Quarter: 2008Q1

REPORT INFORMATION
  Report Type: 
  Country: None (occurrence: None)
  Receive Date: 20080328
  Receipt Date: 19990805
  Transmission Date: 20080703
  Serious: Yes (Death)
  Sender: FDA-Public Use
  Company Number: CA-ROCHE-212706

PATIENT
  Age: 56 Year
  Sex: Female
  Weight: 88 kg

DRUGS (6)
  1. XELODA [Suspect]
     Dosage: 2 WEEKS TREATMENT FOLLOWED BY ONE WEEK REST.
     Route: 048
     Dates: start: 19990615, end: 19990628
  2. THIAZIDE DIURETICS [Concomitant]
     Indication: HYPERTENSION
     Route: 048
  3. DECADRON [Concomitant]
     Indication: BONE PAIN
     Route: 048
  4. COZAAR [Concomitant]
     Indication: HYPERTENSION
     Route: 048
     Dates: start: 19990528
  5. EPIRUBICIN [Concomitant]
     Indication: BREAST CANCER
  6. DOCETAXEL [Concomitant]
     Indication: BREAST CANCER

REACTIONS (5)
  - ABDOMINAL PAIN [None]
  - DEATH [None]
  - DIARRHOEA [None]
  - FALL [None]
  - NAUSEA [None]
